FAERS Safety Report 23124060 (Version 1)
Quarter: 2023Q4

REPORT INFORMATION
  Report Type: Spontaneous
  Country: DE (occurrence: DE)
  Receive Date: 20231030
  Receipt Date: 20231030
  Transmission Date: 20240110
  Serious: Yes (Other)
  Sender: FDA-Public Use
  Company Number: None

PATIENT
  Age: 71 Year
  Sex: Male
  Weight: 69 kg

DRUGS (2)
  1. CITALOPRAM HYDROBROMIDE [Suspect]
     Active Substance: CITALOPRAM HYDROBROMIDE
     Indication: Anxiety
     Route: 048
     Dates: start: 20230127
  2. CITALOPRAM HYDROBROMIDE [Suspect]
     Active Substance: CITALOPRAM HYDROBROMIDE
     Indication: Anxiety
     Route: 048

REACTIONS (11)
  - Erectile dysfunction [Unknown]
  - Aggression [Unknown]
  - Tinnitus [Unknown]
  - Decreased appetite [Unknown]
  - Restlessness [Unknown]
  - Musculoskeletal chest pain [Unknown]
  - Dry mouth [Unknown]
  - Apathy [Unknown]
  - Fatigue [Unknown]
  - Tremor [Unknown]
  - Sleep disorder [Unknown]
